FAERS Safety Report 15733134 (Version 1)
Quarter: 2018Q4

REPORT INFORMATION
  Report Type: Spontaneous
  Country: GB (occurrence: GB)
  Receive Date: 20181218
  Receipt Date: 20181218
  Transmission Date: 20190205
  Serious: Yes (Other)
  Sender: FDA-Public Use
  Company Number: GB-TEVA-2018-GB-988066

PATIENT
  Age: 73 Year
  Sex: Female
  Weight: 69.85 kg

DRUGS (3)
  1. NITROFURANTOIN. [Suspect]
     Active Substance: NITROFURANTOIN
     Indication: URINARY TRACT INFECTION
     Dosage: 200 MILLIGRAM DAILY;
     Route: 048
     Dates: start: 20181111, end: 20181112
  2. CYSTAMOL [Concomitant]
     Dosage: NUMARK CYSTITIS RELIEF
     Route: 065
  3. ACICLOVIR [Concomitant]
     Active Substance: ACYCLOVIR

REACTIONS (12)
  - Hyperhidrosis [Not Recovered/Not Resolved]
  - Piloerection [Unknown]
  - Asthenia [Not Recovered/Not Resolved]
  - Agitation [Unknown]
  - Neuralgia [Not Recovered/Not Resolved]
  - Pyrexia [Not Recovered/Not Resolved]
  - Malaise [Not Recovered/Not Resolved]
  - Paraesthesia [Not Recovered/Not Resolved]
  - Rash erythematous [Recovering/Resolving]
  - Pain [Not Recovered/Not Resolved]
  - Headache [Not Recovered/Not Resolved]
  - Decreased appetite [Recovering/Resolving]

NARRATIVE: CASE EVENT DATE: 20181112
